FAERS Safety Report 17692293 (Version 1)
Quarter: 2020Q2

REPORT INFORMATION
  Report Type: Spontaneous
  Country: US (occurrence: US)
  Receive Date: 20200422
  Receipt Date: 20200422
  Transmission Date: 20200714
  Serious: No
  Sender: FDA-Public Use
  Company Number: US-PFIZER INC-2018523100

PATIENT
  Age: 84 Year
  Sex: Female
  Weight: 77.1 kg

DRUGS (1)
  1. LYRICA [Suspect]
     Active Substance: PREGABALIN
     Indication: NEUROPATHY PERIPHERAL
     Dosage: 100 MG, THREE TIMES A DAY
     Route: 048

REACTIONS (4)
  - Product use in unapproved indication [Unknown]
  - Pre-existing condition improved [Unknown]
  - Off label use [Unknown]
  - Therapeutic response unexpected [Unknown]
